FAERS Safety Report 11868258 (Version 1)
Quarter: 2015Q4

REPORT INFORMATION
  Report Type: Spontaneous
  Country: BR (occurrence: BR)
  Receive Date: 20151224
  Receipt Date: 20151224
  Transmission Date: 20160305
  Serious: Yes (Other)
  Sender: FDA-Public Use
  Company Number: BR-BRISTOL-MYERS SQUIBB COMPANY-BMS-2015-087242

PATIENT
  Age: 67 Year
  Sex: Male

DRUGS (1)
  1. HYDREA [Suspect]
     Active Substance: HYDROXYUREA
     Indication: THROMBOCYTOPENIA
     Dosage: NOT INFORMED
     Route: 048
     Dates: end: 201508

REACTIONS (2)
  - Off label use [Unknown]
  - Condition aggravated [Unknown]
